FAERS Safety Report 4947937-2 (Version None)
Quarter: 2006Q1

REPORT INFORMATION
  Report Type: 
  Country: None (occurrence: None)
  Receive Date: 20060314
  Receipt Date: 20060223
  Transmission Date: 20060701
  Serious: Yes (Death, Other)
  Sender: FDA-Public Use
  Company Number: US200602004804

PATIENT
  Age: 96 Year
  Sex: Female

DRUGS (1)
  1. HUMULIN N [Suspect]
     Indication: DIABETES MELLITUS

REACTIONS (6)
  - ATRIOVENTRICULAR BLOCK [None]
  - CARDIAC PACEMAKER MALFUNCTION [None]
  - CEREBROVASCULAR ACCIDENT [None]
  - DEMENTIA [None]
  - HERPES ZOSTER [None]
  - WHEELCHAIR USER [None]
